FAERS Safety Report 9291336 (Version 1)
Quarter: 2013Q2

REPORT INFORMATION
  Report Type: Spontaneous
  Country: GB (occurrence: None)
  Receive Date: 20130513
  Receipt Date: 20130513
  Transmission Date: 20140414
  Serious: Yes (Other)
  Sender: FDA-Public Use
  Company Number: AUR-APL-2013-03731

PATIENT
  Age: 75 Year
  Sex: Female
  Weight: 81.5 kg

DRUGS (10)
  1. ALENDRONIC ACID [Suspect]
     Indication: PRODUCT USED FOR UNKNOWN INDICATION
     Dates: start: 20130325
  2. ASPIRIN (ACETYLSALICYLIC ACID) [Concomitant]
  3. BENDROFLUMETHIAZIDE (BENDROFLUMETHIAZIDE) [Concomitant]
  4. CALCIUM CARBONATE [Concomitant]
  5. ISOTARD XL [Concomitant]
  6. OMEPRAZOLE (OMEPRAZOLE) [Concomitant]
  7. PARACETAMOL (PARACETAMOL) [Concomitant]
  8. SIMVASTATIN (SIMVASTATIN) [Concomitant]
  9. TRAMADOL (TRAMADOL) [Concomitant]
  10. ZAPAIN (PANADEINE CO) [Concomitant]

REACTIONS (2)
  - Dyspepsia [None]
  - Chest pain [None]
